FAERS Safety Report 5600895-X (Version None)
Quarter: 2008Q1

REPORT INFORMATION
  Report Type: 
  Country: None (occurrence: None)
  Receive Date: 20080124
  Receipt Date: 20080117
  Transmission Date: 20080703
  Serious: Yes (Hospitalization)
  Sender: FDA-Public Use
  Company Number: CN-BAYER-200811102GPV

PATIENT
  Age: 71 Year
  Sex: Female

DRUGS (1)
  1. ULTRAVIST 300 [Suspect]
     Indication: COMPUTERISED TOMOGRAM
     Dosage: AS USED: 100 ML
     Route: 042
     Dates: start: 20080116

REACTIONS (4)
  - CARDIAC ARREST [None]
  - DIZZINESS [None]
  - RESPIRATORY ARREST [None]
  - URINARY INCONTINENCE [None]
